FAERS Safety Report 8947542 (Version 1)
Quarter: 2012Q4

REPORT INFORMATION
  Report Type: Report from Study
  Country: DE (occurrence: DE)
  Receive Date: 20121205
  Receipt Date: 20121205
  Transmission Date: 20130627
  Serious: Yes (Hospitalization)
  Sender: FDA-Public Use
  Company Number: DE-ROCHE-1113363

PATIENT
  Age: 57 Year
  Sex: Female
  Weight: 68 kg

DRUGS (5)
  1. BEVACIZUMAB [Suspect]
     Indication: OVARIAN CANCER
     Dosage: date of last dose prior to onset of  AE: 27/Aug/2012
     Route: 042
     Dates: start: 20120827
  2. CARBOPLATIN [Suspect]
     Indication: OVARIAN CANCER
     Dosage: date of last dose prior to onset of  AE: 27/Aug/2012
     Route: 042
     Dates: start: 20120827
  3. PACLITAXEL [Suspect]
     Indication: OVARIAN CANCER
     Dosage: daily dose of 292,25; date of last dose prior to onset of  AE: 27/Aug/2012
     Route: 042
     Dates: start: 20120827
  4. CEFALOTIN [Concomitant]
     Route: 065
     Dates: start: 20120830
  5. KALINOR [Concomitant]
     Route: 065
     Dates: start: 20120830

REACTIONS (1)
  - General physical health deterioration [Recovered/Resolved]
